FAERS Safety Report 9728108 (Version 1)
Quarter: 2013Q4

REPORT INFORMATION
  Report Type: Spontaneous
  Country: US (occurrence: None)
  Receive Date: 20131203
  Receipt Date: 20131203
  Transmission Date: 20140711
  Serious: Yes (Other)
  Sender: FDA-Public Use
  Company Number: None

PATIENT
  Age: 60 Year
  Sex: Female
  Weight: 58.97 kg

DRUGS (1)
  1. RECLAST [Suspect]
     Indication: GASTRIC DISORDER
     Dates: start: 201010, end: 201110

REACTIONS (3)
  - Osteomyelitis [None]
  - Toothache [None]
  - Loose tooth [None]
